FAERS Safety Report 6091177-3 (Version None)
Quarter: 2009Q1

REPORT INFORMATION
  Report Type: 
  Country: None (occurrence: None)
  Receive Date: 20090225
  Receipt Date: 20090220
  Transmission Date: 20090719
  Serious: Yes (Hospitalization)
  Sender: FDA-Public Use
  Company Number: PL-BRISTOL-MYERS SQUIBB COMPANY-14516967

PATIENT
  Sex: Male
  Weight: 86 kg

DRUGS (11)
  1. CARBOPLATIN [Suspect]
     Indication: NON-SMALL CELL LUNG CANCER
     Dosage: FORMULATION-SOLUTION
     Route: 042
  2. PACLITAXEL [Suspect]
     Indication: NON-SMALL CELL LUNG CANCER
     Dosage: FORMULATION-SOLUTION
     Route: 042
  3. AVASTIN [Suspect]
     Indication: NON-SMALL CELL LUNG CANCER
     Dosage: FORMULATION-SOLUTION
     Route: 042
  4. DEXAMETHASONE [Concomitant]
     Indication: PREMEDICATION
     Dates: start: 20090105, end: 20090105
  5. DIPHERGAN [Concomitant]
     Indication: PREMEDICATION
     Dates: start: 20090105, end: 20090105
  6. RANITIDINE [Concomitant]
     Indication: PREMEDICATION
     Dates: start: 20090105, end: 20090105
  7. PARACETAMOL [Concomitant]
     Indication: PREMEDICATION
     Dates: start: 20090105, end: 20090105
  8. ONDANSETRON [Concomitant]
     Indication: PROPHYLAXIS OF NAUSEA AND VOMITING
     Dates: start: 20090105, end: 20090105
  9. METOCLOPRAMIDE [Concomitant]
     Indication: PROPHYLAXIS OF NAUSEA AND VOMITING
     Dates: start: 20090105, end: 20090105
  10. SALINE [Concomitant]
     Indication: CHEMOTHERAPY
     Dates: start: 20090105, end: 20090105
  11. DARBEPOETIN ALFA [Concomitant]
     Indication: ANAEMIA
     Dates: start: 20090105, end: 20090105

REACTIONS (1)
  - DEEP VEIN THROMBOSIS [None]
